FAERS Safety Report 8212671-2 (Version None)
Quarter: 2012Q1

REPORT INFORMATION
  Report Type: 
  Country: None (occurrence: None)
  Receive Date: 20120315
  Receipt Date: 20120301
  Transmission Date: 20120608
  Serious: Yes (Other)
  Sender: FDA-Public Use
  Company Number: JP-AMGEN-JPNSP2012014245

PATIENT
  Sex: Male

DRUGS (1)
  1. ROMIPLATE [Suspect]
     Indication: PRODUCT USED FOR UNKNOWN INDICATION
     Dosage: UNK
     Route: 058

REACTIONS (2)
  - THERAPEUTIC RESPONSE DECREASED [None]
  - PLATELET COUNT DECREASED [None]
